FAERS Safety Report 14492876 (Version 1)
Quarter: 2018Q1

REPORT INFORMATION
  Report Type: Spontaneous
  Country: US (occurrence: US)
  Receive Date: 20180206
  Receipt Date: 20180206
  Transmission Date: 20180509
  Serious: No
  Sender: FDA-Public Use
  Company Number: US-JNJFOC-20171231048

PATIENT
  Sex: Male

DRUGS (2)
  1. INVEGA [Suspect]
     Active Substance: PALIPERIDONE
     Indication: SCHIZOAFFECTIVE DISORDER
     Dosage: EVERY BEDTIME
     Route: 048
  2. INVEGA SUSTENNA [Suspect]
     Active Substance: PALIPERIDONE PALMITATE
     Indication: SCHIZOAFFECTIVE DISORDER
     Route: 030

REACTIONS (10)
  - Thinking abnormal [Unknown]
  - Depression [Unknown]
  - Affect lability [Unknown]
  - Speech disorder [Unknown]
  - Hypervigilance [Unknown]
  - Crime [Unknown]
  - Treatment noncompliance [Unknown]
  - Delusion [Unknown]
  - Mania [Unknown]
  - Anxiety [Unknown]
